FAERS Safety Report 9668693 (Version 2)
Quarter: 2014Q1

REPORT INFORMATION
  Report Type: Spontaneous
  Country: US (occurrence: US)
  Receive Date: 20131105
  Receipt Date: 20140312
  Transmission Date: 20141002
  Serious: Yes (Hospitalization, Other)
  Sender: FDA-Public Use
  Company Number: US-BAYER-2013-133321

PATIENT
  Age: 20 Year
  Sex: Female
  Weight: 62.59 kg

DRUGS (11)
  1. YAZ [Suspect]
     Dosage: UNK
     Route: 048
     Dates: start: 2006, end: 2007
  2. YASMIN [Suspect]
     Dosage: UNK
     Dates: start: 2006, end: 2007
  3. OCELLA [Suspect]
     Dosage: UNK
     Dates: start: 2006, end: 2007
  4. NAPROXEN [Concomitant]
     Dosage: 500 MG, EVERY 12 HOURS
     Route: 048
     Dates: start: 20070308
  5. CYCLOBENZAPRINE [Concomitant]
     Indication: PAIN IN EXTREMITY
     Dosage: 10 MG, PRN
     Route: 048
     Dates: start: 20070308
  6. IBUPROFEN [Concomitant]
     Indication: HEADACHE
  7. IRON [Concomitant]
  8. SKELAXIN [Concomitant]
  9. VICODIN [Concomitant]
  10. PRILOSEC [Concomitant]
  11. COLACE [Concomitant]

REACTIONS (9)
  - Thrombosis [None]
  - Deep vein thrombosis [Recovering/Resolving]
  - Pain [None]
  - Injury [None]
  - General physical health deterioration [None]
  - Abdominal pain [None]
  - Emotional distress [None]
  - Anxiety [None]
  - Pain [None]
